FAERS Safety Report 11820074 (Version 1)
Quarter: 2015Q4

REPORT INFORMATION
  Report Type: Spontaneous
  Country: US (occurrence: US)
  Receive Date: 20151210
  Receipt Date: 20151210
  Transmission Date: 20160305
  Serious: Yes (Hospitalization)
  Sender: FDA-Public Use
  Company Number: US-SHIRE-US201515671

PATIENT
  Age: 56 Year
  Sex: Male
  Weight: 66.21 kg

DRUGS (3)
  1. WARFARIN [Concomitant]
     Active Substance: WARFARIN
     Indication: PRODUCT USED FOR UNKNOWN INDICATION
     Dosage: UNK
     Route: 058
  2. GATTEX [Suspect]
     Active Substance: TEDUGLUTIDE\WATER
     Indication: MALABSORPTION
     Dosage: 3.6 ML, 1X/DAY:QD
     Route: 058
     Dates: start: 201411
  3. LIPIDS NOS W/PROTEINS NOS/VITAMINS NOS [Concomitant]
     Indication: NUTRITIONAL SUPPLEMENTATION
     Dosage: UNK
     Route: 065

REACTIONS (3)
  - Gastrointestinal disorder [Unknown]
  - Hernia [Unknown]
  - Off label use [Unknown]

NARRATIVE: CASE EVENT DATE: 20151009
